FAERS Safety Report 8257061-1 (Version None)
Quarter: 2012Q2

REPORT INFORMATION
  Report Type: 
  Country: None (occurrence: None)
  Receive Date: 20120403
  Receipt Date: 20120327
  Transmission Date: 20120825
  Serious: Yes (Life-Threatening, Hospitalization)
  Sender: FDA-Public Use
  Company Number: FR-GLAXOSMITHKLINE-B0791310A

PATIENT
  Sex: Female

DRUGS (8)
  1. AMLODIPINE BESYLATE [Concomitant]
     Dosage: 5MG TWICE PER DAY
     Route: 048
  2. PRIMPERAN TAB [Concomitant]
     Dosage: 1UNIT THREE TIMES PER DAY
     Route: 065
  3. PAROXETINE HYDROCHLORIDE [Suspect]
     Indication: PRODUCT USED FOR UNKNOWN INDICATION
     Dosage: 20MG PER DAY
     Route: 048
  4. INDAPAMIDE [Concomitant]
     Dosage: 2.5MG PER DAY
     Route: 048
  5. NITROGLYCERIN [Concomitant]
     Dosage: 10MG PER DAY
     Route: 023
  6. PREVISCAN [Suspect]
     Indication: ATRIAL FIBRILLATION
     Route: 048
     Dates: end: 20111116
  7. FERROUS FUMARATE [Concomitant]
     Dosage: 66MG PER DAY
     Route: 048
  8. DIGOXIN [Concomitant]
     Dosage: .25MG UNKNOWN
     Route: 048

REACTIONS (2)
  - SUBDURAL HAEMATOMA [None]
  - SUBARACHNOID HAEMORRHAGE [None]
